FAERS Safety Report 7394963-2 (Version None)
Quarter: 2011Q2

REPORT INFORMATION
  Report Type: 
  Country: None (occurrence: None)
  Receive Date: 20110405
  Receipt Date: 20110328
  Transmission Date: 20111010
  Serious: Yes (Hospitalization)
  Sender: FDA-Public Use
  Company Number: DE-ROCHE-759014

PATIENT
  Sex: Female
  Weight: 75 kg

DRUGS (6)
  1. CAPECITABINE [Suspect]
     Dosage: 2X/DAY FROM DAY 1 TO 14 TREATMENT DELAYED, DOSE: 3052.5 MG, LAST DOSE PRIOR TO SAE: 30 JAN 2011.
     Route: 048
     Dates: start: 20110126, end: 20110130
  2. TAVOR [Concomitant]
     Indication: ANXIETY
     Dosage: FREQUENCY: 1XDAY
     Route: 048
     Dates: start: 20110125, end: 20110125
  3. NAVOBAN [Concomitant]
     Indication: DRUG TOXICITY PROPHYLAXIS
     Dosage: FREQUENCY: 1XDAY
     Route: 048
     Dates: start: 20110127, end: 20110129
  4. DEXAMETASON [Concomitant]
     Indication: DRUG TOXICITY PROPHYLAXIS
     Dosage: FREQUENCY: 2XDAY
     Route: 048
     Dates: start: 20110125, end: 20110128
  5. EMEND [Concomitant]
     Dosage: FREQUENCY: 1XDAY
     Route: 048
     Dates: start: 20110126, end: 20110129
  6. DOCETAXEL [Suspect]
     Dosage: 75 MG/M2 ON DAY 1 TREATMENT DELAYED, DOSE: 138.75 MG, LAST DOSE PRIOR TO SAE: 26 JAN 2011.
     Route: 042
     Dates: start: 20110126

REACTIONS (1)
  - GASTRITIS [None]
